FAERS Safety Report 11553874 (Version 1)
Quarter: 2015Q3

REPORT INFORMATION
  Report Type: Spontaneous
  Country: BR (occurrence: BR)
  Receive Date: 20150925
  Receipt Date: 20150925
  Transmission Date: 20151125
  Serious: Yes (Other)
  Sender: FDA-Public Use
  Company Number: BR-PFIZER INC-2015315286

PATIENT
  Age: 75 Year
  Sex: Female
  Weight: 80 kg

DRUGS (2)
  1. TRAMAL [Suspect]
     Active Substance: TRAMADOL
     Indication: PAIN
     Dosage: UNK
  2. LYRICA [Suspect]
     Active Substance: PREGABALIN
     Indication: FOOT OPERATION
     Dosage: 75 MG, 1 CAPSULE EVERY 12 HOURS
     Route: 048
     Dates: start: 2013

REACTIONS (4)
  - Dysstasia [Unknown]
  - Rectal cancer [Unknown]
  - Pain [Unknown]
  - Back disorder [Unknown]
